FAERS Safety Report 18770385 (Version 1)
Quarter: 2021Q1

REPORT INFORMATION
  Report Type: Report from Study
  Country: None (occurrence: US)
  Receive Date: 20210122
  Receipt Date: 20210122
  Transmission Date: 20210419
  Serious: Yes (Hospitalization)
  Sender: FDA-Public Use
  Company Number: US-ABBVIE-21K-163-3737213-00

PATIENT
  Age: 89 Year
  Sex: Female

DRUGS (1)
  1. IMBRUVICA [Suspect]
     Active Substance: IBRUTINIB
     Indication: WALDENSTROM^S MACROGLOBULINAEMIA
     Route: 048
     Dates: start: 202101

REACTIONS (5)
  - Fatigue [Unknown]
  - Transfusion [Unknown]
  - Diarrhoea [Unknown]
  - Depressed mood [Unknown]
  - Tearfulness [Unknown]

NARRATIVE: CASE EVENT DATE: 202101
